FAERS Safety Report 13788104 (Version 5)
Quarter: 2019Q1

REPORT INFORMATION
  Report Type: Spontaneous
  Country: US (occurrence: US)
  Receive Date: 20170725
  Receipt Date: 20190225
  Transmission Date: 20190417
  Serious: Yes (Other)
  Sender: FDA-Public Use
  Company Number: US-UNITED THERAPEUTICS-UNT-2017-006289

PATIENT
  Age: 67 Year
  Sex: Female

DRUGS (6)
  1. REMODULIN [Suspect]
     Active Substance: TREPROSTINIL
     Indication: PULMONARY ARTERIAL HYPERTENSION
     Dosage: 0.0804 ?G/KG, CONTINUING
     Route: 041
     Dates: start: 20151106
  2. REMODULIN [Suspect]
     Active Substance: TREPROSTINIL
     Dosage: 0.0841 ?G/KG, CONTINUING
     Route: 041
     Dates: start: 20161221
  3. REMODULIN [Suspect]
     Active Substance: TREPROSTINIL
     Dosage: 7266240 ?G/KG, TOTAL DAILY DOSE
     Route: 041
  4. LETAIRIS [Suspect]
     Active Substance: AMBRISENTAN
     Indication: PULMONARY HYPERTENSION
     Dosage: 10 MG, QD
     Route: 065
     Dates: start: 20180828
  5. REMODULIN [Suspect]
     Active Substance: TREPROSTINIL
     Indication: PULMONARY HYPERTENSION
     Dosage: 0.0731 ?G/KG, CONTINUING
     Route: 041
     Dates: start: 20170414
  6. SILDENAFIL. [Suspect]
     Active Substance: SILDENAFIL
     Indication: PULMONARY HYPERTENSION
     Dosage: 80 MG, TID
     Route: 065
     Dates: start: 20150429

REACTIONS (3)
  - Cataract [Unknown]
  - Visual impairment [Unknown]
  - Glaucoma [Not Recovered/Not Resolved]

NARRATIVE: CASE EVENT DATE: 20161101
